FAERS Safety Report 15553685 (Version 2)
Quarter: 2019Q2

REPORT INFORMATION
  Report Type: Spontaneous
  Country: US (occurrence: US)
  Receive Date: 20181026
  Receipt Date: 20190515
  Transmission Date: 20190711
  Serious: Yes (Other)
  Sender: FDA-Public Use
  Company Number: US-ASTRAZENECA-2018SF39435

PATIENT
  Age: 20525 Day
  Sex: Male
  Weight: 83.9 kg

DRUGS (31)
  1. NEXIUM [Suspect]
     Active Substance: ESOMEPRAZOLE MAGNESIUM
     Indication: GASTROOESOPHAGEAL REFLUX DISEASE
     Dosage: GENERIC (ESOMEPRAZOLE)
     Route: 048
     Dates: start: 2015, end: 2017
  2. ACYCLOVIR. [Concomitant]
     Active Substance: ACYCLOVIR
  3. GLIMEPIRIDE. [Concomitant]
     Active Substance: GLIMEPIRIDE
  4. JANUVIA [Concomitant]
     Active Substance: SITAGLIPTIN PHOSPHATE
  5. LISINOPRIL. [Concomitant]
     Active Substance: LISINOPRIL
  6. PRANDIN [Concomitant]
     Active Substance: REPAGLINIDE
  7. BUPROPION. [Concomitant]
     Active Substance: BUPROPION
  8. ECONAZOLE. [Concomitant]
     Active Substance: ECONAZOLE NITRATE
  9. RAPAMUNE [Concomitant]
     Active Substance: SIROLIMUS
  10. FISH OIL [Concomitant]
     Active Substance: FISH OIL
  11. TYLENOL [Concomitant]
     Active Substance: ACETAMINOPHEN
  12. NEXIUM [Suspect]
     Active Substance: ESOMEPRAZOLE MAGNESIUM
     Indication: GASTROOESOPHAGEAL REFLUX DISEASE
     Route: 048
     Dates: start: 2008, end: 2017
  13. AMLODIPINE [Concomitant]
     Active Substance: AMLODIPINE BESYLATE
  14. CIPROFLOXACIN. [Concomitant]
     Active Substance: CIPROFLOXACIN
  15. CLOTRIMAZOLE. [Concomitant]
     Active Substance: CLOTRIMAZOLE
  16. VITAMIN C [Concomitant]
     Active Substance: ASCORBIC ACID
  17. SULFAMETHOXAZOLE [Concomitant]
     Active Substance: SULFAMETHOXAZOLE
  18. TUSSIONEX PENNKINETIC [Concomitant]
     Active Substance: CHLORPHENIRAMINE\HYDROCODONE
  19. TUMS [Concomitant]
     Active Substance: CALCIUM CARBONATE
  20. LEVAQUIN [Concomitant]
     Active Substance: LEVOFLOXACIN
  21. LUNESTA [Concomitant]
     Active Substance: ESZOPICLONE
  22. LEVAQUIN [Concomitant]
     Active Substance: LEVOFLOXACIN
  23. ENDOCET [Concomitant]
     Active Substance: ACETAMINOPHEN\OXYCODONE HYDROCHLORIDE
  24. HYDROCODONE [Concomitant]
     Active Substance: HYDROCODONE
  25. PRAVASTATIN. [Concomitant]
     Active Substance: PRAVASTATIN
  26. TACROLIMUS. [Concomitant]
     Active Substance: TACROLIMUS
  27. AVELOX [Concomitant]
     Active Substance: MOXIFLOXACIN HYDROCHLORIDE
  28. FLUCONAZOLE. [Concomitant]
     Active Substance: FLUCONAZOLE
  29. GABAPENTIN. [Concomitant]
     Active Substance: GABAPENTIN
  30. METOPROLOL. [Concomitant]
     Active Substance: METOPROLOL
  31. PREDNISONE. [Concomitant]
     Active Substance: PREDNISONE

REACTIONS (2)
  - Chronic kidney disease [Not Recovered/Not Resolved]
  - Nephrogenic anaemia [Not Recovered/Not Resolved]

NARRATIVE: CASE EVENT DATE: 20130701
